FAERS Safety Report 18369435 (Version 4)
Quarter: 2020Q4

REPORT INFORMATION
  Report Type: Spontaneous
  Country: BG (occurrence: BG)
  Receive Date: 20201012
  Receipt Date: 20201117
  Transmission Date: 20210114
  Serious: Yes (Hospitalization, Other)
  Sender: FDA-Public Use
  Company Number: BG-ROCHE-2689448

PATIENT
  Age: 70 Year
  Sex: Male
  Weight: 88 kg

DRUGS (3)
  1. EMANERA [Concomitant]
     Active Substance: ESOMEPRAZOLE MAGNESIUM
     Dosage: 20MG X 1 CAPSULE, ONGOING
     Route: 048
  2. SALOFALK [Concomitant]
     Dosage: 3X1 TABLET, ONGOING
     Route: 048
  3. GAZYVARO [Suspect]
     Active Substance: OBINUTUZUMAB
     Indication: CHRONIC LYMPHOCYTIC LEUKAEMIA
     Route: 042
     Dates: start: 20200513, end: 20200807

REACTIONS (16)
  - Hypersensitivity [Recovered/Resolved]
  - Hepatitis viral [Not Recovered/Not Resolved]
  - Lymphadenopathy [Unknown]
  - Splenomegaly [Unknown]
  - Abdominal pain [Recovering/Resolving]
  - Cholestasis [Recovering/Resolving]
  - C-reactive protein increased [Unknown]
  - Transaminases increased [Recovering/Resolving]
  - Chromaturia [Recovering/Resolving]
  - Hepatitis toxic [Not Recovered/Not Resolved]
  - Renal cyst [Unknown]
  - Biliary neoplasm [Not Recovered/Not Resolved]
  - Cholangitis [Not Recovered/Not Resolved]
  - Bile duct stone [Unknown]
  - Ophthalmic herpes zoster [Recovered/Resolved]
  - Cholecystitis [Not Recovered/Not Resolved]

NARRATIVE: CASE EVENT DATE: 202007
